FAERS Safety Report 12628776 (Version 3)
Quarter: 2016Q3

REPORT INFORMATION
  Report Type: Spontaneous
  Country: PL (occurrence: PL)
  Receive Date: 20160808
  Receipt Date: 20160815
  Transmission Date: 20161109
  Serious: Yes (Hospitalization)
  Sender: FDA-Public Use
  Company Number: PL-ROCHE-1809531

PATIENT

DRUGS (1)
  1. AVASTIN [Suspect]
     Active Substance: BEVACIZUMAB
     Indication: PRODUCT USED FOR UNKNOWN INDICATION
     Dosage: 1.25MG EQUIVALENT TO 0.05ML
     Route: 031

REACTIONS (3)
  - Endophthalmitis [Not Recovered/Not Resolved]
  - Suspected transmission of an infectious agent via product [Unknown]
  - Off label use [Unknown]
